FAERS Safety Report 14423931 (Version 3)
Quarter: 2019Q1

REPORT INFORMATION
  Report Type: Spontaneous
  Country: DK (occurrence: DK)
  Receive Date: 20180123
  Receipt Date: 20190213
  Transmission Date: 20190417
  Serious: Yes (Hospitalization, Disabling)
  Sender: FDA-Public Use
  Company Number: DK-AUROBINDO-AUR-APL-2018-002193

PATIENT

DRUGS (3)
  1. CLARITHROMYCIN ACTAVIS [Suspect]
     Active Substance: CLARITHROMYCIN
     Indication: SINUSITIS
     Dosage: 500 MG, ONCE A DAY
     Route: 048
     Dates: start: 20170227, end: 20170303
  2. CLARITHROMYCIN AUROBINDO FILM COATED TABLETS 250MG [Suspect]
     Active Substance: CLARITHROMYCIN
     Dosage: 750 MILLIGRAM, ONCE A DAY
     Route: 048
     Dates: start: 20170220, end: 20170225
  3. CLARITHROMYCIN AUROBINDO FILM COATED TABLETS 250MG [Suspect]
     Active Substance: CLARITHROMYCIN
     Indication: SINUSITIS
     Dosage: 250 MG, ONCE A DAY
     Route: 048
     Dates: start: 20170220, end: 20170225

REACTIONS (5)
  - Mental disorder [Unknown]
  - Tinnitus [Not Recovered/Not Resolved]
  - Hyperacusis [Not Recovered/Not Resolved]
  - Hypoacusis [Not Recovered/Not Resolved]
  - Hearing aid therapy [Unknown]

NARRATIVE: CASE EVENT DATE: 20170226
